FAERS Safety Report 5508556-2 (Version None)
Quarter: 2007Q4

REPORT INFORMATION
  Report Type: 
  Country: None (occurrence: None)
  Receive Date: 20071105
  Receipt Date: 20071019
  Transmission Date: 20080405
  Serious: Yes (Other)
  Sender: FDA-Public Use
  Company Number: A-CH2006-13179

PATIENT
  Age: 22 Year
  Sex: Female
  Weight: 40 kg

DRUGS (3)
  1. ZAVESCA [Suspect]
     Indication: NIEMANN-PICK DISEASE
     Dosage: 200 MG, TID, ORAL, 100 MG, TID, ORAL, 200 MG, TID, ORAL
     Route: 048
     Dates: start: 20060321, end: 20061101
  2. ZAVESCA [Suspect]
     Indication: NIEMANN-PICK DISEASE
     Dosage: 200 MG, TID, ORAL, 100 MG, TID, ORAL, 200 MG, TID, ORAL
     Route: 048
     Dates: start: 20061101
  3. ZAVESCA [Suspect]
     Indication: NIEMANN-PICK DISEASE
     Dosage: 200 MG, TID, ORAL, 100 MG, TID, ORAL, 200 MG, TID, ORAL
     Route: 048
     Dates: start: 20061101

REACTIONS (4)
  - HALLUCINATION, VISUAL [None]
  - INCORRECT DOSE ADMINISTERED [None]
  - TREATMENT NONCOMPLIANCE [None]
  - WEIGHT DECREASED [None]
